FAERS Safety Report 8881999 (Version 1)
Quarter: 2012Q4

REPORT INFORMATION
  Report Type: Report from Study
  Country: ES (occurrence: ES)
  Receive Date: 20121101
  Receipt Date: 20121101
  Transmission Date: 20130627
  Serious: Yes (Life-Threatening, Hospitalization)
  Sender: FDA-Public Use
  Company Number: ES-BAXTER-2012BAX020948

PATIENT
  Age: 64 Year
  Sex: Female
  Weight: 65.07 kg

DRUGS (16)
  1. GENOXAL [Suspect]
     Indication: CHRONIC LYMPHOCYTIC LEUKEMIA
     Dosage: DAYS 1 - 3 OF A 28 DAY CYCLE
     Route: 042
     Dates: start: 20061018
  2. GENOXAL [Suspect]
     Dosage: DAYS 1 - 3 OF A 28 DAY CYCLE
     Route: 042
     Dates: start: 20070308
  3. RITUXIMAB [Suspect]
     Indication: CHRONIC LYMPHOCYTIC LEUKEMIA
     Route: 042
     Dates: start: 20061017
  4. RITUXIMAB [Suspect]
     Route: 042
     Dates: start: 20070306
  5. FLUDARABINE [Suspect]
     Indication: CHRONIC LYMPHOCYTIC LEUKEMIA
     Route: 042
     Dates: start: 20061018
  6. FLUDARABINE [Suspect]
     Route: 042
     Dates: start: 20070306
  7. METFORMIN [Suspect]
     Indication: DIABETES MELLITUS
     Route: 065
     Dates: start: 20010615, end: 20071028
  8. CO-TRIMOXAZOLE [Concomitant]
     Indication: DRUG USE FOR UNKNOWN INDICATION
     Route: 065
     Dates: start: 20061031, end: 20070720
  9. CO-TRIMOXAZOLE [Concomitant]
     Route: 065
     Dates: start: 20071129
  10. FLUCONAZOLE [Concomitant]
     Indication: DRUG USE FOR UNKNOWN INDICATION
     Route: 065
     Dates: start: 20070525, end: 20070720
  11. GLICLAZIDE [Concomitant]
     Indication: DRUG USE FOR UNKNOWN INDICATION
     Route: 065
     Dates: start: 20030615, end: 20071028
  12. LOPERAMIDE [Concomitant]
     Indication: DRUG USE FOR UNKNOWN INDICATION
     Route: 065
     Dates: start: 20071023, end: 20071028
  13. VORICONAZOLE [Concomitant]
     Indication: DRUG USE FOR UNKNOWN INDICATION
     Route: 065
     Dates: start: 20071023, end: 20071028
  14. OMEPRAZOLE [Concomitant]
     Indication: DRUG USE FOR UNKNOWN INDICATION
     Route: 065
     Dates: start: 20061010
  15. LEVOFLOXACIN [Concomitant]
     Indication: DRUG USE FOR UNKNOWN INDICATION
     Route: 065
     Dates: start: 20080112, end: 20080121
  16. CASPOFUNGIN [Concomitant]
     Indication: DRUG USE FOR UNKNOWN INDICATION
     Route: 065
     Dates: start: 20080112, end: 20080121

REACTIONS (3)
  - Metabolic acidosis [Recovered/Resolved]
  - Pyrexia [Recovered/Resolved]
  - Diarrhoea [Recovered/Resolved]
